FAERS Safety Report 17374807 (Version 1)
Quarter: 2020Q1

REPORT INFORMATION
  Report Type: Spontaneous
  Country: US (occurrence: US)
  Receive Date: 20200204
  Receipt Date: 20200204
  Transmission Date: 20200409
  Serious: Yes (Death)
  Sender: FDA-Public Use
  Company Number: None

PATIENT
  Age: 56 Year
  Sex: Male

DRUGS (1)
  1. ALTEPLASE. [Suspect]
     Active Substance: ALTEPLASE

REACTIONS (5)
  - Cerebral haemorrhage [None]
  - Dyspnoea [None]
  - Areflexia [None]
  - Cerebral artery occlusion [None]
  - Mydriasis [None]

NARRATIVE: CASE EVENT DATE: 20190918
